FAERS Safety Report 18220013 (Version 1)
Quarter: 2020Q3

REPORT INFORMATION
  Report Type: Spontaneous
  Country: NO (occurrence: NO)
  Receive Date: 20200901
  Receipt Date: 20200901
  Transmission Date: 20201103
  Serious: Yes (Hospitalization)
  Sender: FDA-Public Use
  Company Number: NO-ROCHE-2668957

PATIENT
  Age: 66 Year
  Sex: Male
  Weight: 96 kg

DRUGS (3)
  1. ZELBORAF [Suspect]
     Active Substance: VEMURAFENIB
     Indication: PRODUCT USED FOR UNKNOWN INDICATION
     Dosage: STARTED WITH 960 MG 2 TIMES A DAY, BUT REDUCED THE DOSE TO 720 MG 2 TIMES A DAY, BECAUSE OF ITCHING
     Route: 065
     Dates: start: 20200121
  2. ZELBORAF [Suspect]
     Active Substance: VEMURAFENIB
     Route: 065
     Dates: end: 20200508
  3. COTELLIC [Suspect]
     Active Substance: COBIMETINIB
     Indication: PRODUCT USED FOR UNKNOWN INDICATION
     Dosage: THE DRUG WAS TAKEN IN CYCLES: THE DRUG WAS TAKEN DAILY FOR 3 WEEKS, THEN A WEEK WITHOUT TAKING THE D
     Route: 065
     Dates: start: 20200121, end: 20200508

REACTIONS (4)
  - Gait inability [Recovering/Resolving]
  - Pruritus [Unknown]
  - Rash [Unknown]
  - Dysstasia [Recovering/Resolving]

NARRATIVE: CASE EVENT DATE: 20200507
